FAERS Safety Report 5154038-X (Version None)
Quarter: 2006Q4

REPORT INFORMATION
  Report Type: 
  Country: None (occurrence: None)
  Receive Date: 20061120
  Receipt Date: 20061107
  Transmission Date: 20070319
  Serious: Yes (Hospitalization)
  Sender: FDA-Public Use
  Company Number: FR-ROCHE-470482

PATIENT
  Age: 43 Year
  Sex: Female
  Weight: 67 kg

DRUGS (4)
  1. XELODA [Suspect]
     Route: 048
  2. ROWASA [Suspect]
     Indication: DRUG USE FOR UNKNOWN INDICATION
     Route: 065
  3. ROWASA [Suspect]
     Route: 054
  4. METEOXANE [Concomitant]

REACTIONS (4)
  - FEMALE GENITAL TRACT FISTULA [None]
  - GASTROINTESTINAL CANDIDIASIS [None]
  - INTESTINAL PERFORATION [None]
  - WEIGHT DECREASED [None]
